FAERS Safety Report 7263495-4 (Version None)
Quarter: 2011Q1

REPORT INFORMATION
  Report Type: 
  Country: None (occurrence: None)
  Receive Date: 20110130
  Receipt Date: 20101215
  Transmission Date: 20110831
  Serious: No
  Sender: FDA-Public Use
  Company Number: US-ABBOTT-10P-163-0691751-00

PATIENT
  Sex: Female

DRUGS (7)
  1. MERCAPTOPURINE [Concomitant]
     Indication: PRODUCT USED FOR UNKNOWN INDICATION
  2. MULTI-VITAMIN [Concomitant]
     Indication: PRODUCT USED FOR UNKNOWN INDICATION
  3. HUMIRA [Suspect]
     Indication: CROHN'S DISEASE
     Dosage: DAY 1
     Route: 058
     Dates: start: 20101213
  4. HUMIRA [Suspect]
     Dosage: DAY 15
     Route: 058
  5. ENTOCORT EC [Concomitant]
     Indication: PRODUCT USED FOR UNKNOWN INDICATION
  6. HUMIRA [Suspect]
     Route: 058
  7. HUMIRA [Suspect]
     Dosage: DAY 29
     Route: 058

REACTIONS (2)
  - HEADACHE [None]
  - DRY MOUTH [None]
